FAERS Safety Report 7752236-X (Version None)
Quarter: 2011Q3

REPORT INFORMATION
  Report Type: 
  Country: None (occurrence: None)
  Receive Date: 20110915
  Receipt Date: 20110913
  Transmission Date: 20111222
  Serious: No
  Sender: FDA-Public Use
  Company Number: US-PFIZER INC-2011116532

PATIENT
  Sex: Female
  Weight: 63.492 kg

DRUGS (3)
  1. ADVIL LIQUI-GELS [Suspect]
     Indication: OSTEOARTHRITIS
     Dosage: UNK, 2X/DAY
     Route: 048
  2. ADVIL LIQUI-GELS [Suspect]
     Indication: BACK DISORDER
  3. ADVIL LIQUI-GELS [Suspect]
     Indication: PAIN
     Dosage: 600 MG, 2X/DAY
     Route: 048

REACTIONS (3)
  - OEDEMA PERIPHERAL [None]
  - NOCTURIA [None]
  - JOINT SWELLING [None]
